FAERS Safety Report 17155123 (Version 4)
Quarter: 2020Q3

REPORT INFORMATION
  Report Type: Report from Study
  Country: US (occurrence: US)
  Receive Date: 20191214
  Receipt Date: 20200924
  Transmission Date: 20201102
  Serious: Yes (Other)
  Sender: FDA-Public Use
  Company Number: NVSC2019US015946

PATIENT
  Age: 32 Year
  Sex: Female

DRUGS (3)
  1. GILENYA [Suspect]
     Active Substance: FINGOLIMOD HYDROCHLORIDE
     Indication: MULTIPLE SCLEROSIS
     Dosage: 0.5 MG, QD
     Route: 048
     Dates: start: 2016, end: 201802
  2. COPAXONE [Suspect]
     Active Substance: GLATIRAMER ACETATE
     Indication: PRODUCT USED FOR UNKNOWN INDICATION
     Route: 065
  3. GILENYA [Suspect]
     Active Substance: FINGOLIMOD HYDROCHLORIDE
     Dosage: 0.5 MG, QD
     Route: 048
     Dates: start: 20190925

REACTIONS (13)
  - Influenza like illness [Not Recovered/Not Resolved]
  - Fatigue [Recovering/Resolving]
  - Neuralgia [Unknown]
  - Nasopharyngitis [Not Recovered/Not Resolved]
  - Multiple sclerosis relapse [Recovering/Resolving]
  - Paraesthesia [Unknown]
  - Normal newborn [Unknown]
  - Respiratory tract infection [Not Recovered/Not Resolved]
  - Asthenia [Recovering/Resolving]
  - Pain in extremity [Unknown]
  - Maternal exposure timing unspecified [Unknown]
  - Gastroenteritis viral [Not Recovered/Not Resolved]
  - Headache [Not Recovered/Not Resolved]

NARRATIVE: CASE EVENT DATE: 20200220
